FAERS Safety Report 4520702-6 (Version None)
Quarter: 2004Q4

REPORT INFORMATION
  Report Type: 
  Country: None (occurrence: None)
  Receive Date: 20041207
  Receipt Date: 20041011
  Transmission Date: 20050328
  Serious: Yes (Life-Threatening, Hospitalization, Disabling, Other)
  Sender: FDA-Public Use
  Company Number: US-MERCK-0410USA01647

PATIENT
  Age: 80 Year
  Sex: Male

DRUGS (11)
  1. FLOMAX [Concomitant]
     Route: 065
  2. FOLIC ACID [Concomitant]
     Route: 065
  3. VIOXX [Suspect]
     Indication: OSTEOARTHRITIS
     Route: 048
     Dates: start: 20020204, end: 20041128
  4. PRINIVIL [Concomitant]
     Route: 065
  5. ZOCOR [Concomitant]
     Route: 065
  6. COUMADIN [Concomitant]
     Route: 065
  7. ATENOLOL [Concomitant]
     Route: 065
  8. ALLOPURINOL [Concomitant]
     Route: 065
  9. LASIX [Concomitant]
     Route: 065
  10. POTASSIUM (UNSPECIFIED) [Concomitant]
     Route: 065
  11. PRILOSEC [Concomitant]
     Route: 065

REACTIONS (3)
  - ANAEMIA [None]
  - CEREBROVASCULAR ACCIDENT [None]
  - VENTRICULAR TACHYCARDIA [None]
